FAERS Safety Report 8131108-5 (Version None)
Quarter: 2012Q1

REPORT INFORMATION
  Report Type: 
  Country: None (occurrence: None)
  Receive Date: 20120213
  Receipt Date: 20120111
  Transmission Date: 20120608
  Serious: No
  Sender: FDA-Public Use
  Company Number: CA-JNJFOC-20120204085

PATIENT
  Sex: Female

DRUGS (11)
  1. ZOPLICONE [Concomitant]
  2. SULFASALAZINE [Concomitant]
  3. OXYCONTIN [Concomitant]
  4. REMICADE [Suspect]
     Route: 042
     Dates: start: 20111213
  5. IMIGLUCERASE [Concomitant]
  6. PREDNISONE [Concomitant]
  7. PAXIL [Concomitant]
  8. REMICADE [Suspect]
     Indication: RHEUMATOID ARTHRITIS
     Route: 042
     Dates: start: 20110706
  9. ATACAND [Concomitant]
  10. ARTHROTEC [Concomitant]
  11. CLOZAPINE [Concomitant]

REACTIONS (1)
  - HERPES ZOSTER [None]
